FAERS Safety Report 6474763-8 (Version None)
Quarter: 2009Q4

REPORT INFORMATION
  Report Type: 
  Country: None (occurrence: None)
  Receive Date: 20091204
  Receipt Date: 20090505
  Transmission Date: 20100525
  Serious: Yes (Death, Hospitalization, Congenital Anomaly, Other)
  Sender: FDA-Public Use
  Company Number: US-ELI_LILLY_AND_COMPANY-US200902002037

PATIENT
  Sex: Female
  Weight: 5.02 kg

DRUGS (1)
  1. SARAFEM [Suspect]
     Dosage: UNK, UNKNOWN
     Route: 064

REACTIONS (14)
  - ARRHYTHMIA [None]
  - BRADYCARDIA [None]
  - BRONCHOPNEUMONIA [None]
  - CARDIO-RESPIRATORY ARREST [None]
  - CARDIOMEGALY [None]
  - DIARRHOEA [None]
  - DRUG EXPOSURE DURING PREGNANCY [None]
  - HYPOTENSION [None]
  - HYPOXIA [None]
  - ISCHAEMIA [None]
  - METABOLIC ACIDOSIS [None]
  - MYDRIASIS [None]
  - TRUNCUS ARTERIOSUS PERSISTENT [None]
  - VOMITING [None]
